FAERS Safety Report 16048493 (Version 1)
Quarter: 2019Q1

REPORT INFORMATION
  Report Type: Spontaneous
  Country: BE (occurrence: BE)
  Receive Date: 20190307
  Receipt Date: 20190307
  Transmission Date: 20190418
  Serious: Yes (Other)
  Sender: FDA-Public Use
  Company Number: BE-MYLANLABS-2019M1020261

PATIENT
  Age: 33 Year
  Sex: Male

DRUGS (9)
  1. STAVUDINE. [Concomitant]
     Active Substance: STAVUDINE
     Indication: HIV INFECTION
     Dosage: UNK (TRIPLE THERAPY)
     Dates: start: 199805
  2. PACLITAXEL. [Suspect]
     Active Substance: PACLITAXEL
     Indication: PLEURAL EFFUSION
     Dosage: 60 MILLIGRAM
     Dates: start: 19990120
  3. BLEOMYCIN [Concomitant]
     Active Substance: BLEOMYCIN SULFATE
     Indication: HIV INFECTION
     Dosage: UNK (MAINTENANCE TREATMENT)
  4. VINCRISTINE SULPHATE [Concomitant]
     Active Substance: VINCRISTINE SULFATE
     Indication: HIV INFECTION
     Dosage: UNK UNK, CYCLICAL (SIX COURSES EVERY 2 WEEKS)
  5. INDINAVIR [Concomitant]
     Active Substance: INDINAVIR
     Indication: HIV INFECTION
     Dosage: UNK (TRIPLE THERAPY)
     Dates: start: 199805
  6. PACLITAXEL. [Suspect]
     Active Substance: PACLITAXEL
     Indication: PRIMARY EFFUSION LYMPHOMA
     Dosage: 75 MG/M2, UNK (INFUSION)
     Dates: start: 19990202
  7. BLEOMYCIN [Concomitant]
     Active Substance: BLEOMYCIN SULFATE
     Dosage: 1 CYCLICAL, (SIX COURSES EVERY 2 WEEKS)
  8. LAMIVUDINE. [Concomitant]
     Active Substance: LAMIVUDINE
     Indication: HIV INFECTION
     Dosage: UNK (TRIPLE THERAPY)
     Dates: start: 199805
  9. ADRIAMYCIN [Concomitant]
     Active Substance: DOXORUBICIN HYDROCHLORIDE
     Indication: HIV INFECTION
     Dosage: UNK UNK, CYCLICAL (SIX COURSES EVERY 2 WEEKS)

REACTIONS (1)
  - Pulmonary hypertension [Recovered/Resolved]
